FAERS Safety Report 21038868 (Version 4)
Quarter: 2024Q4

REPORT INFORMATION
  Report Type: Spontaneous
  Country: CA (occurrence: CA)
  Receive Date: 20220704
  Receipt Date: 20241028
  Transmission Date: 20250115
  Serious: Yes (Hospitalization)
  Sender: ROCHE
  Company Number: CA-ROCHE-3126576

PATIENT
  Age: 27 Year
  Sex: Female
  Weight: 120.0 kg

DRUGS (6)
  1. RITUXIMAB [Suspect]
     Active Substance: RITUXIMAB
     Indication: Systemic lupus erythematosus
     Route: 041
  2. SERTRALINE [Concomitant]
     Active Substance: SERTRALINE HYDROCHLORIDE
     Dosage: DRUG DOSE FIRST ADMINISTERED IS 75.0 MILLIGRAM
     Route: 065
  3. FERRIC POLYSACCHARIDE COMPLEX [Concomitant]
     Active Substance: FERRIC POLYSACCHARIDE COMPLEX
     Route: 065
  4. AMLODIPINE [Concomitant]
     Active Substance: AMLODIPINE BESYLATE
     Route: 048
  5. CALCIUM CARBONATE\CHOLECALCIFEROL [Concomitant]
     Active Substance: CALCIUM CARBONATE\CHOLECALCIFEROL
     Route: 048
  6. DIMENHYDRINATE [Concomitant]
     Active Substance: DIMENHYDRINATE
     Route: 048

REACTIONS (19)
  - Butterfly rash [Recovered/Resolved]
  - Systemic lupus erythematosus [Recovered/Resolved]
  - Vasculitis [Recovered/Resolved]
  - Nephropathy [Recovered/Resolved]
  - Rash [Recovered/Resolved]
  - Blood creatinine increased [Recovered/Resolved]
  - Red blood cell sedimentation rate increased [Recovered/Resolved]
  - Central nervous system lupus [Recovered/Resolved]
  - Mouth ulceration [Recovered/Resolved]
  - Haemoglobin decreased [Recovered/Resolved]
  - Protein urine present [Recovered/Resolved]
  - COVID-19 pneumonia [Recovered/Resolved]
  - Drug ineffective [Unknown]
  - Off label use [Unknown]
  - Blood urine present [Recovered/Resolved]
  - Lupus nephritis [Recovered/Resolved]
  - C-reactive protein increased [Recovered/Resolved]
  - Arthralgia [Recovered/Resolved]
  - Psychotic disorder [Recovered/Resolved]
